FAERS Safety Report 6609828-0 (Version None)
Quarter: 2010Q1

REPORT INFORMATION
  Report Type: 
  Country: None (occurrence: None)
  Receive Date: 20100302
  Receipt Date: 20100218
  Transmission Date: 20100710
  Serious: Yes (Hospitalization)
  Sender: FDA-Public Use
  Company Number: PHHY2010IL09731

PATIENT
  Sex: Male

DRUGS (2)
  1. EXJADE [Suspect]
     Indication: THALASSAEMIA
     Route: 048
  2. EXJADE [Suspect]
     Indication: CHELATION THERAPY

REACTIONS (3)
  - HAEMOLYSIS [None]
  - LIVER INJURY [None]
  - SURGERY [None]
